FAERS Safety Report 25390716 (Version 1)
Quarter: 2025Q2

REPORT INFORMATION
  Report Type: Spontaneous
  Country: GB (occurrence: GB)
  Receive Date: 20250603
  Receipt Date: 20250603
  Transmission Date: 20250716
  Serious: Yes (Hospitalization, Other)
  Sender: MERCK SHARP & DOHME LLC
  Company Number: None

PATIENT
  Age: 67 Year
  Sex: Female
  Weight: 89 kg

DRUGS (41)
  1. KEYTRUDA [Suspect]
     Active Substance: PEMBROLIZUMAB
     Indication: Diffuse large B-cell lymphoma
     Dates: start: 20231207, end: 20231207
  2. KEYTRUDA [Suspect]
     Active Substance: PEMBROLIZUMAB
     Indication: Diffuse large B-cell lymphoma
     Dates: start: 20231116, end: 20231116
  3. KEYTRUDA [Suspect]
     Active Substance: PEMBROLIZUMAB
     Indication: Diffuse large B-cell lymphoma
     Dates: start: 20231229, end: 20231229
  4. ONDANSETRON HYDROCHLORIDE [Concomitant]
     Active Substance: ONDANSETRON HYDROCHLORIDE
  5. RITUXIMAB [Suspect]
     Active Substance: RITUXIMAB
     Indication: Diffuse large B-cell lymphoma
     Dates: start: 20231116, end: 20231116
  6. RITUXIMAB [Suspect]
     Active Substance: RITUXIMAB
     Indication: Diffuse large B-cell lymphoma
     Dates: start: 20231207, end: 20231207
  7. RITUXIMAB [Suspect]
     Active Substance: RITUXIMAB
     Indication: Diffuse large B-cell lymphoma
     Dates: start: 20231229, end: 20231229
  8. SIMVASTATIN [Suspect]
     Active Substance: SIMVASTATIN
     Indication: Diffuse large B-cell lymphoma
     Route: 048
     Dates: start: 20130508, end: 20240820
  9. IFOSFAMIDE [Suspect]
     Active Substance: IFOSFAMIDE
     Indication: Diffuse large B-cell lymphoma
     Dates: start: 20231117, end: 20231117
  10. IFOSFAMIDE [Suspect]
     Active Substance: IFOSFAMIDE
     Indication: Diffuse large B-cell lymphoma
     Dates: start: 20231210, end: 20231210
  11. IFOSFAMIDE [Suspect]
     Active Substance: IFOSFAMIDE
     Indication: Diffuse large B-cell lymphoma
     Dates: start: 20240101, end: 20240101
  12. CODEINE PHOSPHATE [Concomitant]
     Active Substance: CODEINE PHOSPHATE
  13. CARBOPLATIN [Suspect]
     Active Substance: CARBOPLATIN
     Indication: Diffuse large B-cell lymphoma
     Dates: start: 20231117, end: 20231117
  14. CARBOPLATIN [Suspect]
     Active Substance: CARBOPLATIN
     Indication: Diffuse large B-cell lymphoma
     Dates: start: 20231208, end: 20231208
  15. CARBOPLATIN [Suspect]
     Active Substance: CARBOPLATIN
     Indication: Diffuse large B-cell lymphoma
     Dates: start: 20231230, end: 20231230
  16. ETOPOSIDE [Suspect]
     Active Substance: ETOPOSIDE
     Indication: Diffuse large B-cell lymphoma
     Dates: start: 20231118, end: 20231118
  17. ETOPOSIDE [Suspect]
     Active Substance: ETOPOSIDE
     Indication: Diffuse large B-cell lymphoma
     Dates: start: 20231210, end: 20231210
  18. ETOPOSIDE [Suspect]
     Active Substance: ETOPOSIDE
     Indication: Diffuse large B-cell lymphoma
     Dates: start: 20231231, end: 20231231
  19. ETOPOSIDE [Suspect]
     Active Substance: ETOPOSIDE
     Indication: Diffuse large B-cell lymphoma
     Dates: start: 20240209, end: 20240214
  20. CARMUSTINE [Suspect]
     Active Substance: CARMUSTINE
     Indication: Diffuse large B-cell lymphoma
     Dates: start: 20240209, end: 20240214
  21. METFORMIN [Concomitant]
     Active Substance: METFORMIN HYDROCHLORIDE
  22. CYTARABINE [Suspect]
     Active Substance: CYTARABINE
     Indication: Diffuse large B-cell lymphoma
     Dates: start: 20240209, end: 20240214
  23. PLERIXAFOR [Suspect]
     Active Substance: PLERIXAFOR
     Indication: Diffuse large B-cell lymphoma
     Dates: start: 20240110, end: 20240111
  24. GRANULOCYTE COLONY-STIMULATING FACTOR NOS [Suspect]
     Active Substance: GRANULOCYTE COLONY-STIMULATING FACTOR NOS
     Indication: Diffuse large B-cell lymphoma
     Dates: start: 20231124, end: 20240226
  25. ACETAMINOPHEN [Suspect]
     Active Substance: ACETAMINOPHEN
     Indication: Diffuse large B-cell lymphoma
     Route: 048
     Dates: start: 20190520
  26. ACETAMINOPHEN [Suspect]
     Active Substance: ACETAMINOPHEN
     Indication: Diffuse large B-cell lymphoma
     Route: 048
     Dates: start: 20240617
  27. OXETACAINE [Concomitant]
     Active Substance: OXETHAZAINE
  28. DAPAGLIFLOZIN [Concomitant]
     Active Substance: DAPAGLIFLOZIN
     Route: 048
     Dates: start: 20210113, end: 20240213
  29. DAPAGLIFLOZIN [Concomitant]
     Active Substance: DAPAGLIFLOZIN
     Dosage: 10 MILLIGRAM, QD
     Dates: start: 20210113, end: 20240213
  30. BUTYLSCOPOLAMINE BROMIDE [Concomitant]
     Active Substance: BUTYLSCOPOLAMINE BROMIDE
  31. GLUCOPHAGE [Concomitant]
     Active Substance: METFORMIN HYDROCHLORIDE
     Route: 048
     Dates: start: 20161124, end: 20240301
  32. INDAPAMIDE [Concomitant]
     Active Substance: INDAPAMIDE
     Route: 048
     Dates: start: 20180730, end: 20240208
  33. NOVORAPID [Concomitant]
     Active Substance: INSULIN ASPART
     Route: 058
     Dates: start: 20070313, end: 20240303
  34. OMEPRAZOLE [Concomitant]
     Active Substance: OMEPRAZOLE
     Route: 048
     Dates: start: 20230821, end: 20240303
  35. TRESIBA [Concomitant]
     Active Substance: INSULIN DEGLUDEC
     Route: 058
     Dates: start: 20181129, end: 20240301
  36. CHOLECALCIFEROL [Concomitant]
     Active Substance: CHOLECALCIFEROL
     Dates: start: 20240208, end: 20240303
  37. ACYCLOVIR [Concomitant]
     Active Substance: ACYCLOVIR
  38. LOPERAMIDE [Concomitant]
     Active Substance: LOPERAMIDE
  39. FAMOTIDINE [Concomitant]
     Active Substance: FAMOTIDINE
  40. POTASSIUM [Concomitant]
     Active Substance: POTASSIUM
  41. COTRIMOXAZOLE [Concomitant]
     Active Substance: SULFAMETHOXAZOLE\TRIMETHOPRIM

REACTIONS (6)
  - Acute respiratory distress syndrome [Not Recovered/Not Resolved]
  - Dyspnoea [Recovered/Resolved]
  - Acute kidney injury [Recovered/Resolved with Sequelae]
  - Alanine aminotransferase increased [Not Recovered/Not Resolved]
  - Colitis [Recovered/Resolved with Sequelae]
  - Mobility decreased [Not Recovered/Not Resolved]

NARRATIVE: CASE EVENT DATE: 20231123
